FAERS Safety Report 26054524 (Version 2)
Quarter: 2025Q4

REPORT INFORMATION
  Report Type: Spontaneous
  Country: US (occurrence: US)
  Receive Date: 20251117
  Receipt Date: 20251119
  Transmission Date: 20260118
  Serious: No
  Sender: NOVARTIS
  Company Number: US-002147023-NVSC2025US176701

PATIENT
  Sex: Female

DRUGS (1)
  1. RHAPSIDO [Suspect]
     Active Substance: REMIBRUTINIB
     Indication: Urticaria
     Dosage: UNK
     Route: 048
     Dates: start: 20251105

REACTIONS (2)
  - Flushing [Unknown]
  - Skin burning sensation [Unknown]
